FAERS Safety Report 16211688 (Version 2)
Quarter: 2019Q2

REPORT INFORMATION
  Report Type: Spontaneous
  Country: TR (occurrence: TR)
  Receive Date: 20190418
  Receipt Date: 20190502
  Transmission Date: 20190711
  Serious: Yes (Other)
  Sender: FDA-Public Use
  Company Number: TR-ROCHE-2306033

PATIENT
  Age: 71 Year
  Sex: Male

DRUGS (1)
  1. LUCENTIS [Suspect]
     Active Substance: RANIBIZUMAB
     Indication: MACULAR DEGENERATION
     Route: 065
     Dates: start: 2016, end: 2017

REACTIONS (3)
  - Administration site pain [Recovered/Resolved]
  - Drug ineffective [Unknown]
  - Macular oedema [Recovered/Resolved]
